FAERS Safety Report 20258419 (Version 1)
Quarter: 2021Q4

REPORT INFORMATION
  Report Type: Spontaneous
  Country: US (occurrence: None)
  Receive Date: 20211229
  Receipt Date: 20211229
  Transmission Date: 20220303
  Serious: No
  Sender: FDA-Public Use
  Company Number: None

PATIENT
  Sex: Female

DRUGS (12)
  1. HUMIRA [Suspect]
     Active Substance: ADALIMUMAB
     Indication: Rheumatoid arthritis
     Dosage: OTHER QUANTITY : 40MG/0.4ML;?FREQUENCY : EVERY OTHER WEEK;?INJECT 1 PEN UNDER THE SKIN (SUBCUTANEOUS
     Route: 058
     Dates: start: 20201222
  2. ACID GONE CHW [Concomitant]
  3. ARIPIPRAZOLE TAB [Concomitant]
  4. DILTIAZEM CAP ER [Concomitant]
  5. FEROSUL TAB [Concomitant]
  6. FOLIC ACID TAB [Concomitant]
  7. HUMIRA [Concomitant]
     Active Substance: ADALIMUMAB
  8. HYDROXYCHLOR TAB [Concomitant]
  9. METHOTREXATE [Concomitant]
     Active Substance: METHOTREXATE
  10. NORTRIPTYLIN CAP [Concomitant]
  11. OMEPRAZOLE [Concomitant]
     Active Substance: OMEPRAZOLE
  12. SIMVASTATIN [Concomitant]
     Active Substance: SIMVASTATIN

REACTIONS (2)
  - Urethritis [None]
  - Therapy interrupted [None]
